FAERS Safety Report 5230304-4 (Version None)
Quarter: 2007Q1

REPORT INFORMATION
  Report Type: 
  Country: None (occurrence: None)
  Receive Date: 20070206
  Receipt Date: 20070124
  Transmission Date: 20070707
  Serious: Yes (Hospitalization, Other)
  Sender: FDA-Public Use
  Company Number: FR-BAYER-200610729BFR

PATIENT
  Age: 43 Year
  Sex: Female
  Weight: 69 kg

DRUGS (4)
  1. SORAFENIB [Suspect]
     Indication: METASTATIC MALIGNANT MELANOMA
     Dosage: TOTAL DAILY DOSE: 800 MG  UNIT DOSE: 200 MG
     Route: 048
     Dates: start: 20060711, end: 20060728
  2. SORAFENIB [Suspect]
     Dosage: TOTAL DAILY DOSE: 800 MG  UNIT DOSE: 200 MG
     Route: 048
     Dates: start: 20060615, end: 20060706
  3. DACARBAZINE [Suspect]
     Indication: METASTATIC MALIGNANT MELANOMA
     Route: 042
     Dates: start: 20060615, end: 20060615
  4. DACARBAZINE [Suspect]
     Route: 042
     Dates: start: 20060711, end: 20060711

REACTIONS (3)
  - ESCHERICHIA SEPSIS [None]
  - PANCYTOPENIA [None]
  - PYREXIA [None]
